FAERS Safety Report 10254907 (Version 1)
Quarter: 2014Q2

REPORT INFORMATION
  Report Type: Spontaneous
  Country: US (occurrence: US)
  Receive Date: 20140624
  Receipt Date: 20140624
  Transmission Date: 20141212
  Serious: Yes (Other)
  Sender: FDA-Public Use
  Company Number: US-JNJFOC-20140609156

PATIENT
  Sex: 0

DRUGS (1)
  1. STELARA [Suspect]
     Indication: OFF LABEL USE
     Route: 058

REACTIONS (2)
  - Pyoderma gangrenosum [Unknown]
  - Off label use [Unknown]
